FAERS Safety Report 10422390 (Version 2)
Quarter: 2014Q4

REPORT INFORMATION
  Report Type: Spontaneous
  Country: JP (occurrence: JP)
  Receive Date: 20140901
  Receipt Date: 20141103
  Transmission Date: 20150528
  Serious: Yes (Hospitalization, Other)
  Sender: FDA-Public Use
  Company Number: PHHY2013JP161749

PATIENT
  Age: 84 Year
  Sex: Female

DRUGS (2)
  1. EXELON [Suspect]
     Active Substance: RIVASTIGMINE TARTRATE
     Indication: DEMENTIA ALZHEIMER^S TYPE
     Dosage: 4.5 MG, DAILY
     Route: 062
     Dates: start: 20120626, end: 20121118
  2. EXELON [Suspect]
     Active Substance: RIVASTIGMINE TARTRATE
     Dosage: 9 MG, DAILY
     Route: 062
     Dates: start: 20121119, end: 20140326

REACTIONS (7)
  - Cognitive disorder [Not Recovered/Not Resolved]
  - Ileus [Recovered/Resolved]
  - Duodenal ulcer [Recovered/Resolved]
  - Amnesia [Unknown]
  - Abasia [Unknown]
  - Fall [Unknown]
  - Obstruction gastric [Recovered/Resolved]

NARRATIVE: CASE EVENT DATE: 20121119
